FAERS Safety Report 10109239 (Version 3)
Quarter: 2016Q1

REPORT INFORMATION
  Report Type: Spontaneous
  Country: US (occurrence: US)
  Receive Date: 20140425
  Receipt Date: 20160107
  Transmission Date: 20160525
  Serious: Yes (Hospitalization, Other)
  Sender: FDA-Public Use
  Company Number: US-BAYER-2014-059712

PATIENT
  Age: 30 Year
  Sex: Female
  Weight: 92.2 kg

DRUGS (2)
  1. MEVACOR [Concomitant]
     Active Substance: LOVASTATIN
  2. YASMIN [Suspect]
     Active Substance: DROSPIRENONE\ETHINYL ESTRADIOL

REACTIONS (9)
  - Anxiety [None]
  - Fear of disease [None]
  - Emotional distress [None]
  - Embolism arterial [None]
  - Injury [None]
  - Myocardial infarction [None]
  - Pain [None]
  - Anhedonia [None]
  - Quality of life decreased [None]

NARRATIVE: CASE EVENT DATE: 200405
